FAERS Safety Report 24628477 (Version 2)
Quarter: 2024Q4

REPORT INFORMATION
  Report Type: Spontaneous
  Country: US (occurrence: US)
  Receive Date: 20241117
  Receipt Date: 20241121
  Transmission Date: 20250115
  Serious: No
  Sender: ELI LILLY AND COMPANY
  Company Number: US-ELI_LILLY_AND_COMPANY-US202411007718

PATIENT
  Age: 71 Year
  Sex: Male

DRUGS (2)
  1. TALTZ [Suspect]
     Active Substance: IXEKIZUMAB
     Indication: Psoriasis
     Dosage: UNK UNK, UNKNOWN
     Route: 065
     Dates: start: 2022
  2. TALTZ [Suspect]
     Active Substance: IXEKIZUMAB
     Dosage: 160 MG, UNKNOWN
     Route: 065

REACTIONS (6)
  - Psoriasis [Not Recovered/Not Resolved]
  - Stress [Unknown]
  - Incorrect dose administered [Unknown]
  - Injection site pain [Unknown]
  - Injection site haemorrhage [Unknown]
  - Injection site urticaria [Unknown]
